FAERS Safety Report 5964475-9 (Version None)
Quarter: 2008Q4

REPORT INFORMATION
  Report Type: 
  Country: None (occurrence: None)
  Receive Date: 20081121
  Receipt Date: 20081121
  Transmission Date: 20090506
  Serious: Yes (Disabling, Other)
  Sender: FDA-Public Use
  Company Number: None

PATIENT
  Sex: Male
  Weight: 89.8122 kg

DRUGS (2)
  1. SEROQUEL [Suspect]
     Indication: BIPOLAR DISORDER
     Dosage: 1 TAB @BEDTIME DAILY
     Dates: start: 19990101, end: 20080101
  2. SEROQUEL [Suspect]
     Indication: DEPRESSION
     Dosage: 1 TAB @BEDTIME DAILY
     Dates: start: 19990101, end: 20080101

REACTIONS (7)
  - BLOOD CHOLESTEROL INCREASED [None]
  - DIABETES MELLITUS [None]
  - HYPERLIPIDAEMIA [None]
  - HYPERTRIGLYCERIDAEMIA [None]
  - HYPOTHYROIDISM [None]
  - WAIST CIRCUMFERENCE INCREASED [None]
  - WEIGHT INCREASED [None]
